FAERS Safety Report 13916540 (Version 1)
Quarter: 2017Q3

REPORT INFORMATION
  Report Type: Spontaneous
  Country: JP (occurrence: JP)
  Receive Date: 20170829
  Receipt Date: 20170829
  Transmission Date: 20171127
  Serious: Yes (Hospitalization)
  Sender: FDA-Public Use
  Company Number: JP-JNJFOC-20170821724

PATIENT
  Age: 44 Year
  Sex: Male
  Weight: 118 kg

DRUGS (3)
  1. CANAGLU [Suspect]
     Active Substance: CANAGLIFLOZIN
     Indication: TYPE 2 DIABETES MELLITUS
     Route: 048
     Dates: start: 20160804, end: 20170615
  2. METFORMIN HYDROCHLORIDE. [Concomitant]
     Active Substance: METFORMIN HYDROCHLORIDE
     Indication: TYPE 2 DIABETES MELLITUS
     Route: 048
     Dates: start: 20150610
  3. OMARIGLIPTIN [Concomitant]
     Active Substance: OMARIGLIPTIN
     Indication: TYPE 2 DIABETES MELLITUS
     Route: 048
     Dates: start: 20170420, end: 20170803

REACTIONS (1)
  - Biliary colic [Recovered/Resolved]

NARRATIVE: CASE EVENT DATE: 20170628
